FAERS Safety Report 8931353 (Version 2)
Quarter: 2012Q4

REPORT INFORMATION
  Report Type: 
  Country: US (occurrence: US)
  Receive Date: 20121121
  Receipt Date: 20121212
  Transmission Date: 20130627
  Serious: Yes (Death)
  Sender: FDA-Public Use
  Company Number: US-ASTELLAS-1106193

PATIENT
  Sex: Male
  Weight: 89.44 kg

DRUGS (1)
  1. TARCEVA [Suspect]
     Indication: MALIGNANT RESPIRATORY TRACT NEOPLASM
     Route: 065

REACTIONS (6)
  - Death [Fatal]
  - Dyspnoea [Unknown]
  - Dysphagia [Unknown]
  - Dysphonia [Unknown]
  - Fatigue [Unknown]
  - Musculoskeletal pain [Unknown]
